FAERS Safety Report 7827241-5 (Version None)
Quarter: 2011Q4

REPORT INFORMATION
  Report Type: 
  Country: None (occurrence: None)
  Receive Date: 20111020
  Receipt Date: 20111013
  Transmission Date: 20120403
  Serious: Yes (Hospitalization, Other)
  Sender: FDA-Public Use
  Company Number: IT-PFIZER INC-2011247662

PATIENT
  Age: 86 Year
  Sex: Female

DRUGS (3)
  1. NIMESULIDE [Suspect]
     Indication: OSTEOARTHRITIS
     Dosage: 100 MG, AS NEEDED
     Route: 048
     Dates: start: 20090101, end: 20110816
  2. ATORVASTATIN CALCIUM [Suspect]
     Indication: CORONARY ARTERY DISEASE
     Dosage: 20 MG, DAILY
     Route: 048
     Dates: start: 20090101, end: 20110829
  3. TAPAZOLE [Suspect]
     Indication: GOITRE
     Dosage: 5 MG, WEEKLY
     Route: 048
     Dates: start: 20090101, end: 20110906

REACTIONS (5)
  - DECREASED APPETITE [None]
  - WEIGHT DECREASED [None]
  - DYSPEPSIA [None]
  - ALANINE AMINOTRANSFERASE INCREASED [None]
  - IMMUNOGLOBULINS ABNORMAL [None]
